FAERS Safety Report 14752992 (Version 1)
Quarter: 2018Q2

REPORT INFORMATION
  Report Type: Spontaneous
  Country: GR (occurrence: GR)
  Receive Date: 20180412
  Receipt Date: 20180412
  Transmission Date: 20180711
  Serious: Yes (Life-Threatening)
  Sender: FDA-Public Use
  Company Number: GR-PFIZER INC-2018149298

PATIENT
  Age: 81 Year
  Sex: Female
  Weight: 67 kg

DRUGS (3)
  1. LIPITOR [Suspect]
     Active Substance: ATORVASTATIN CALCIUM
     Indication: DYSLIPIDAEMIA
     Dosage: 1 DF, 1X/DAY, 40 MG
  2. LIPITOR [Suspect]
     Active Substance: ATORVASTATIN CALCIUM
     Indication: DYSLIPIDAEMIA
     Dosage: 1 DF, 1X/DAY, 20 MG
     Dates: start: 2008, end: 2015
  3. INEGY [Suspect]
     Active Substance: EZETIMIBE\SIMVASTATIN
     Indication: DYSLIPIDAEMIA
     Dosage: 1 DF (10 MG + 40 MG), 1X/DAY
     Dates: start: 2015, end: 2017

REACTIONS (2)
  - Myalgia [Unknown]
  - Myopathy [Unknown]

NARRATIVE: CASE EVENT DATE: 2008
